FAERS Safety Report 14612749 (Version 1)
Quarter: 2018Q1

REPORT INFORMATION
  Report Type: Spontaneous
  Country: IT (occurrence: IT)
  Receive Date: 20180308
  Receipt Date: 20180308
  Transmission Date: 20180509
  Serious: Yes (Other)
  Sender: FDA-Public Use
  Company Number: IT-ASTRAZENECA-2018SE26557

PATIENT
  Age: 85 Year
  Sex: Male

DRUGS (10)
  1. ESOMEPRAZOLE [Suspect]
     Active Substance: ESOMEPRAZOLE
     Dosage: 40.0MG UNKNOWN
     Route: 065
  2. ATORVASTATIN [Interacting]
     Active Substance: ATORVASTATIN
     Dosage: 40.0MG UNKNOWN
     Route: 065
  3. LEVOTHYROXINE. [Interacting]
     Active Substance: LEVOTHYROXINE
     Dosage: 125 MCG
     Route: 065
  4. BISOPROLOL [Interacting]
     Active Substance: BISOPROLOL
     Dosage: 1.25MG UNKNOWN
     Route: 065
  5. AMIODARONE [Interacting]
     Active Substance: AMIODARONE
     Dosage: 200.0MG UNKNOWN
     Route: 065
  6. RAMIPRIL. [Interacting]
     Active Substance: RAMIPRIL
     Dosage: 2.5MG UNKNOWN
     Route: 065
  7. INSULIN [Interacting]
     Active Substance: INSULIN NOS
     Indication: TYPE 2 DIABETES MELLITUS
     Dosage: 30 DAILY UNITS (8 AT BREAKFAST, 12 AT LUNCH, AND 10 AT DINNER)
     Route: 065
  8. TRIMETHOPRIM-SULFAMETHOXAZOLE [Interacting]
     Active Substance: SULFAMETHOXAZOLE\TRIMETHOPRIM
     Indication: URINARY TRACT INFECTION
     Dosage: 960.0MG UNKNOWN
     Route: 048
  9. ACETYLSALICYLIC ACID [Interacting]
     Active Substance: ASPIRIN
     Dosage: 100.0MG UNKNOWN
     Route: 065
  10. CLOPIDOGREL [Interacting]
     Active Substance: CLOPIDOGREL BISULFATE
     Dosage: 75.0MG UNKNOWN
     Route: 065

REACTIONS (2)
  - Drug interaction [Recovered/Resolved]
  - Hypoglycaemia [Recovered/Resolved]

NARRATIVE: CASE EVENT DATE: 201609
